FAERS Safety Report 11090423 (Version 6)
Quarter: 2018Q3

REPORT INFORMATION
  Report Type: Report from Study
  Country: US (occurrence: US)
  Receive Date: 20150505
  Receipt Date: 20180919
  Transmission Date: 20181010
  Serious: Yes (Other)
  Sender: FDA-Public Use
  Company Number: US-SA-2014SA158320

PATIENT
  Age: 26 Year
  Sex: Female

DRUGS (2)
  1. TERIFLUNOMIDE [Suspect]
     Active Substance: TERIFLUNOMIDE
     Dosage: 14 MG, QD
     Route: 048
     Dates: start: 20160329
  2. TERIFLUNOMIDE [Suspect]
     Active Substance: TERIFLUNOMIDE
     Indication: MULTIPLE SCLEROSIS
     Dosage: 14 MG,QD
     Route: 048
     Dates: start: 20141030

REACTIONS (17)
  - Condition aggravated [Not Recovered/Not Resolved]
  - Unevaluable event [Unknown]
  - Pain [Not Recovered/Not Resolved]
  - Breast discomfort [Unknown]
  - Drug dose omission [Unknown]
  - Retinal injury [Not Recovered/Not Resolved]
  - Multiple sclerosis relapse [Not Recovered/Not Resolved]
  - Tunnel vision [Not Recovered/Not Resolved]
  - Rash [Unknown]
  - Treponema test positive [Unknown]
  - Syphilis [Unknown]
  - Herpes simplex [Not Recovered/Not Resolved]
  - Eye pain [Unknown]
  - Treatment noncompliance [Unknown]
  - Visual impairment [Not Recovered/Not Resolved]
  - Menstruation irregular [Unknown]
  - Feeling abnormal [Not Recovered/Not Resolved]

NARRATIVE: CASE EVENT DATE: 201411
